FAERS Safety Report 10333773 (Version 1)
Quarter: 2014Q3

REPORT INFORMATION
  Report Type: Spontaneous
  Country: US (occurrence: US)
  Receive Date: 20140723
  Receipt Date: 20140723
  Transmission Date: 20150326
  Serious: Yes (Hospitalization, Other)
  Sender: FDA-Public Use
  Company Number: US-009507513-1407USA007144

PATIENT
  Age: 25 Year
  Sex: Female
  Weight: 68.27 kg

DRUGS (1)
  1. IMPLANON [Suspect]
     Active Substance: ETONOGESTREL
     Indication: CONTRACEPTION
     Dosage: 1 IMPLANT/3 YEARS
     Route: 058
     Dates: start: 20120510

REACTIONS (2)
  - Abortion spontaneous [Unknown]
  - Unintended pregnancy [Recovered/Resolved]

NARRATIVE: CASE EVENT DATE: 20140715
